FAERS Safety Report 6313594-6 (Version None)
Quarter: 2009Q3

REPORT INFORMATION
  Report Type: 
  Country: None (occurrence: None)
  Receive Date: 20090814
  Receipt Date: 20090814
  Transmission Date: 20100115
  Serious: Yes (Hospitalization)
  Sender: FDA-Public Use
  Company Number: None

PATIENT
  Age: 72 Year
  Sex: Female

DRUGS (3)
  1. NEUTROGENA BUILD-A-TAN GRADUAL SUNLESS TANNER [Suspect]
     Indication: SKIN COSMETIC PROCEDURE
     Dosage: TOPICAL
     Route: 061
     Dates: start: 20090701
  2. ASPIRIN [Concomitant]
  3. ANTIHYPERTENSIVE [Concomitant]

REACTIONS (2)
  - CARDIAC FAILURE CONGESTIVE [None]
  - EMPHYSEMA [None]
